FAERS Safety Report 5906975-3 (Version None)
Quarter: 2008Q4

REPORT INFORMATION
  Report Type: 
  Country: None (occurrence: None)
  Receive Date: 20081002
  Receipt Date: 20081002
  Transmission Date: 20090506
  Serious: Yes (Life-Threatening, Disabling, Other)
  Sender: FDA-Public Use
  Company Number: None

PATIENT
  Age: 86 Year
  Sex: Male
  Weight: 94.3482 kg

DRUGS (1)
  1. AVELOX [Suspect]
     Indication: SINUSITIS
     Dosage: 400MG ONCE A DAY PO
     Route: 048
     Dates: start: 20080918, end: 20080927

REACTIONS (2)
  - OEDEMA PERIPHERAL [None]
  - TENDON PAIN [None]
